FAERS Safety Report 26094109 (Version 1)
Quarter: 2025Q4

REPORT INFORMATION
  Report Type: Report from Study
  Country: CA (occurrence: CA)
  Receive Date: 20251126
  Receipt Date: 20251126
  Transmission Date: 20260118
  Serious: Yes (Other)
  Sender: ABBVIE
  Company Number: CA-ABBVIE-6560640

PATIENT
  Age: 30 Year
  Sex: Female
  Weight: 90.7 kg

DRUGS (2)
  1. RINVOQ [Suspect]
     Active Substance: UPADACITINIB
     Indication: Crohn^s disease
     Route: 048
  2. RINVOQ [Suspect]
     Active Substance: UPADACITINIB
     Indication: Crohn^s disease
     Route: 048
     Dates: end: 20251117

REACTIONS (6)
  - Stoma creation [Unknown]
  - Abdominal pain [Unknown]
  - Anal fissure [Unknown]
  - Fistula [Unknown]
  - Malaise [Unknown]
  - Rectal discharge [Unknown]

NARRATIVE: CASE EVENT DATE: 20250101
